FAERS Safety Report 7074097-7 (Version None)
Quarter: 2010Q4

REPORT INFORMATION
  Report Type: 
  Country: None (occurrence: None)
  Receive Date: 20101029
  Receipt Date: 20101020
  Transmission Date: 20110411
  Serious: Yes (Other)
  Sender: FDA-Public Use
  Company Number: CA-JNJFOC-20101006364

PATIENT
  Sex: Male
  Weight: 115 kg

DRUGS (1)
  1. REMICADE [Suspect]
     Indication: PSORIASIS
     Route: 042

REACTIONS (4)
  - HYPERHIDROSIS [None]
  - NAUSEA [None]
  - PALLOR [None]
  - PRESYNCOPE [None]
